FAERS Safety Report 20833052 (Version 1)
Quarter: 2022Q2

REPORT INFORMATION
  Report Type: Spontaneous
  Country: US (occurrence: US)
  Receive Date: 20220516
  Receipt Date: 20220516
  Transmission Date: 20220721
  Serious: Yes (Other)
  Sender: FDA-Public Use
  Company Number: US-BRISTOL-MYERS SQUIBB COMPANY-2022-032972

PATIENT
  Age: 55 Year
  Sex: Female
  Weight: 110.6 kg

DRUGS (1)
  1. REVLIMID [Suspect]
     Active Substance: LENALIDOMIDE
     Indication: Plasma cell myeloma
     Dosage: 2 WEEK, 1 WEEK OFF
     Route: 048
     Dates: start: 20220201

REACTIONS (2)
  - Renal impairment [Unknown]
  - Off label use [Unknown]
